FAERS Safety Report 5367366-X (Version None)
Quarter: 2007Q2

REPORT INFORMATION
  Report Type: 
  Country: None (occurrence: None)
  Receive Date: 20070622
  Receipt Date: 20060907
  Transmission Date: 20071010
  Serious: No
  Sender: FDA-Public Use
  Company Number: US-ASTRAZENECA-2006UW17623

PATIENT
  Age: 47 Year
  Sex: Female
  Weight: 57.6 kg

DRUGS (6)
  1. PULMICORT RESPULES [Suspect]
     Indication: ASTHMA
     Route: 055
  2. PULMICORT RESPULES [Suspect]
     Indication: DYSPNOEA
     Route: 055
  3. ADVAIR DISKUS 100/50 [Concomitant]
  4. XOPENEX [Concomitant]
  5. FLUTICASONE PROPIONATE [Concomitant]
  6. DYAZIDE [Concomitant]

REACTIONS (2)
  - DYSPNOEA [None]
  - INSOMNIA [None]
